FAERS Safety Report 8790093 (Version 1)
Quarter: 2012Q4

REPORT INFORMATION
  Report Type: 
  Country: US (occurrence: US)
  Receive Date: 20120917
  Receipt Date: 20120917
  Transmission Date: 20130627
  Serious: Yes (Hospitalization)
  Sender: FDA-Public Use
  Company Number: US-BAYER-2012-096090

PATIENT
  Age: 20 Year
  Sex: Female
  Weight: 78.8 kg

DRUGS (4)
  1. YASMIN [Suspect]
  2. TYLENOL WITH CODEINE [Concomitant]
     Indication: PAIN
     Dosage: UNK
     Dates: start: 20051109
  3. MORPHINE [Concomitant]
     Indication: PAIN
     Dosage: UNK
     Dates: start: 20051109
  4. VICODIN [Concomitant]

REACTIONS (1)
  - Pulmonary embolism [Recovered/Resolved]
